FAERS Safety Report 6430974-9 (Version None)
Quarter: 2009Q4

REPORT INFORMATION
  Report Type: 
  Country: None (occurrence: None)
  Receive Date: 20091106
  Receipt Date: 20091027
  Transmission Date: 20100525
  Serious: Yes (Hospitalization, Other)
  Sender: FDA-Public Use
  Company Number: FR-PFIZER INC-2009291600

PATIENT
  Age: 71 Year
  Sex: Female

DRUGS (3)
  1. EPIRUBICIN HCL [Suspect]
     Indication: BREAST CANCER
     Dosage: UNK
     Dates: start: 20080902, end: 20081105
  2. FLUOROURACIL [Suspect]
     Indication: BREAST CANCER
     Dosage: UNK
     Dates: start: 20080902, end: 20081105
  3. CYCLOPHOSPHAMIDE [Suspect]
     Indication: BREAST CANCER
     Dosage: UNK
     Dates: start: 20080902, end: 20081105

REACTIONS (2)
  - FEBRILE NEUTROPENIA [None]
  - INFECTED LYMPHOCELE [None]
